FAERS Safety Report 9164469 (Version 1)
Quarter: 2013Q1

REPORT INFORMATION
  Report Type: Spontaneous
  Country: US (occurrence: US)
  Receive Date: 20130315
  Receipt Date: 20130315
  Transmission Date: 20140127
  Serious: Yes (Hospitalization, Other)
  Sender: FDA-Public Use
  Company Number: US-BAYER-2013-028242

PATIENT
  Sex: Female

DRUGS (1)
  1. MIRENA [Suspect]
     Dosage: 20 MCG/24HR, CONT
     Route: 015
     Dates: start: 200702, end: 200708

REACTIONS (7)
  - Device dislocation [None]
  - Vaginal haemorrhage [None]
  - Muscle spasms [None]
  - Abdominal pain upper [None]
  - Pain [None]
  - Injury [None]
  - Emotional distress [None]
